FAERS Safety Report 8543878-2 (Version None)
Quarter: 2012Q3

REPORT INFORMATION
  Report Type: 
  Country: None (occurrence: None)
  Receive Date: 20120727
  Receipt Date: 20120725
  Transmission Date: 20120928
  Serious: Yes (Hospitalization)
  Sender: FDA-Public Use
  Company Number: PHFR2012GB003779

PATIENT
  Sex: Female

DRUGS (4)
  1. LAXATIVES [Concomitant]
     Indication: CONSTIPATION
  2. DIAZEPAM [Concomitant]
     Indication: ANXIETY
     Dosage: 2 MG, PRN
     Route: 048
  3. CLOZARIL [Suspect]
     Indication: SCHIZOPHRENIA
     Route: 048
     Dates: start: 20080425
  4. CLOZARIL [Suspect]
     Dosage: 225 MG, UNK
     Route: 048

REACTIONS (3)
  - RECTAL PROLAPSE [None]
  - DIARRHOEA HAEMORRHAGIC [None]
  - VOMITING [None]
